FAERS Safety Report 9508662 (Version 1)
Quarter: 2013Q3

REPORT INFORMATION
  Report Type: Report from Study
  Country: DE (occurrence: TR)
  Receive Date: 20130909
  Receipt Date: 20130909
  Transmission Date: 20140515
  Serious: Yes (Death)
  Sender: FDA-Public Use
  Company Number: DE-ACTELION-A-NJ2013-88221

PATIENT
  Age: 39 Year
  Sex: 0
  Weight: 90 kg

DRUGS (1)
  1. VENTAVIS [Suspect]
     Indication: PRODUCT USED FOR UNKNOWN INDICATION
     Dosage: 6X1
     Route: 055
     Dates: start: 20100304, end: 20130829

REACTIONS (2)
  - Respiratory failure [Fatal]
  - Cardiac failure [Fatal]
